FAERS Safety Report 8661777 (Version 2)
Quarter: 2012Q4

REPORT INFORMATION
  Report Type: Spontaneous
  Country: DK (occurrence: None)
  Receive Date: 20120626
  Receipt Date: 20121009
  Transmission Date: 20130627
  Serious: Yes (Hospitalization, Other)
  Sender: FDA-Public Use
  Company Number: DK-INDICUS PHARMA-000005

PATIENT
  Age: 56 Year
  Sex: Female

DRUGS (1)
  1. METFORMIN HYDROCHLORIDE [Suspect]
     Indication: PRODUCT USED FOR UNKNOWN INDICATION

REACTIONS (6)
  - Lactic acidosis [None]
  - Renal failure [None]
  - Gastrointestinal disorder [None]
  - Metabolic acidosis [None]
  - Hypotension [None]
  - Diarrhoea [None]
